FAERS Safety Report 5707455-0 (Version None)
Quarter: 2008Q2

REPORT INFORMATION
  Report Type: 
  Country: None (occurrence: None)
  Receive Date: 20080416
  Receipt Date: 20080403
  Transmission Date: 20081010
  Serious: Yes (Hospitalization)
  Sender: FDA-Public Use
  Company Number: ES-ELI_LILLY_AND_COMPANY-ES200804000687

PATIENT
  Age: 71 Year
  Sex: Female

DRUGS (1)
  1. CYMBALTA [Suspect]
     Indication: DEPRESSION
     Dosage: 60 MG, UNK
     Route: 048
     Dates: start: 20061205, end: 20061205

REACTIONS (5)
  - NAUSEA [None]
  - PRURITUS [None]
  - SUFFOCATION FEELING [None]
  - VISUAL DISTURBANCE [None]
  - VOMITING [None]
